FAERS Safety Report 5073375-0 (Version None)
Quarter: 2006Q3

REPORT INFORMATION
  Report Type: 
  Country: None (occurrence: None)
  Receive Date: 20060803
  Receipt Date: 20060717
  Transmission Date: 20061208
  Serious: Yes (Hospitalization, Other)
  Sender: FDA-Public Use
  Company Number: US200607002761

PATIENT
  Age: 83 Year
  Sex: Female

DRUGS (2)
  1. EVISTA [Suspect]
     Indication: OSTEOPOROSIS
     Dosage: ORAL
     Route: 048
     Dates: start: 20060301
  2. COUMADIN [Concomitant]

REACTIONS (5)
  - ARTERIAL THROMBOSIS LIMB [None]
  - BLOOD GLUCOSE INCREASED [None]
  - CEREBROVASCULAR ACCIDENT [None]
  - INTRACARDIAC THROMBUS [None]
  - PROTHROMBIN TIME PROLONGED [None]
